FAERS Safety Report 12388817 (Version 1)
Quarter: 2016Q2

REPORT INFORMATION
  Report Type: Spontaneous
  Country: US (occurrence: US)
  Receive Date: 20160520
  Receipt Date: 20160520
  Transmission Date: 20160815
  Serious: Yes (Death)
  Sender: FDA-Public Use
  Company Number: US-B. BRAUN MEDICAL INC.-1052531

PATIENT
  Age: 68 Year
  Sex: Female

DRUGS (2)
  1. SODIUM CHLORIDE INJECTIONS USP 0264-7800-00 0264-7800-10 [Suspect]
     Active Substance: SODIUM CHLORIDE
     Route: 042
     Dates: start: 20160424, end: 20160424
  2. LEVOPHED [Concomitant]
     Active Substance: NOREPINEPHRINE BITARTRATE

REACTIONS (1)
  - Air embolism [Fatal]

NARRATIVE: CASE EVENT DATE: 20160424
